FAERS Safety Report 7357618-6 (Version None)
Quarter: 2011Q1

REPORT INFORMATION
  Report Type: 
  Country: None (occurrence: None)
  Receive Date: 20110309
  Receipt Date: 20110217
  Transmission Date: 20110831
  Serious: Yes (Hospitalization, Other)
  Sender: FDA-Public Use
  Company Number: JPI-P-010561

PATIENT
  Age: 61 Year
  Sex: Male

DRUGS (11)
  1. XYREM [Suspect]
     Indication: CATAPLEXY
     Dosage: SEE IMAGE:
     Route: 048
     Dates: start: 20100201, end: 20100313
  2. XYREM [Suspect]
     Indication: CATAPLEXY
     Dosage: SEE IMAGE:
     Route: 048
     Dates: start: 20100101, end: 20100201
  3. XYREM [Suspect]
     Indication: CATAPLEXY
     Dosage: SEE IMAGE:
     Route: 048
     Dates: start: 20100320, end: 20110216
  4. XYREM [Suspect]
     Indication: CATAPLEXY
     Dosage: SEE IMAGE:
     Route: 048
     Dates: start: 20100314, end: 20100319
  5. OMEPRAZOLE [Concomitant]
  6. RAMIPRIL [Concomitant]
  7. AMLODIPINE BESILATE [Concomitant]
  8. MODAFINIL [Concomitant]
  9. ATENOLOL [Concomitant]
  10. ATORVASTATIN CALCIUM [Concomitant]
  11. ATORVASTATIN CALCIUM [Concomitant]

REACTIONS (11)
  - AGGRESSION [None]
  - MUSCLE TIGHTNESS [None]
  - ARTHRALGIA [None]
  - ABNORMAL DREAMS [None]
  - ENURESIS [None]
  - AGITATION [None]
  - INSOMNIA [None]
  - CRYING [None]
  - CONFUSIONAL STATE [None]
  - RENAL NEOPLASM [None]
  - AMNESIA [None]
